FAERS Safety Report 19574923 (Version 2)
Quarter: 2021Q3

REPORT INFORMATION
  Report Type: Spontaneous
  Country: JP (occurrence: JP)
  Receive Date: 20210719
  Receipt Date: 20210817
  Transmission Date: 20211014
  Serious: Yes (Other)
  Sender: FDA-Public Use
  Company Number: NVSJ2021JP010751

PATIENT
  Sex: Male

DRUGS (8)
  1. LONGES [Concomitant]
     Active Substance: LISINOPRIL
     Indication: CARDIAC FAILURE
     Dosage: 10 MG
     Route: 065
  2. FORXIGA [Concomitant]
     Active Substance: DAPAGLIFLOZIN
     Indication: CARDIAC FAILURE
     Dosage: 10 MG
     Route: 065
  3. DIART [Concomitant]
     Indication: CARDIAC FAILURE
     Dosage: 30 MG
     Route: 065
  4. SAMSCA [Concomitant]
     Active Substance: TOLVAPTAN
     Indication: CARDIAC FAILURE
     Dosage: 7.5 MG
     Route: 065
  5. BISOPROLOL [Suspect]
     Active Substance: BISOPROLOL
     Indication: CARDIAC FAILURE ACUTE
     Dosage: 1.25 MG
     Route: 065
  6. SPIRONOLACTONE. [Concomitant]
     Active Substance: SPIRONOLACTONE
     Indication: CARDIAC FAILURE
     Dosage: 50 MG
     Route: 065
  7. BISOPROLOL [Suspect]
     Active Substance: BISOPROLOL
     Dosage: 2.5 MG
     Route: 065
  8. ENTRESTO [Suspect]
     Active Substance: SACUBITRIL\VALSARTAN
     Indication: CARDIAC FAILURE CHRONIC
     Dosage: 100 MG
     Route: 048

REACTIONS (3)
  - Cardiac sarcoidosis [Unknown]
  - Ventricular tachycardia [Unknown]
  - Myocardial fibrosis [Unknown]
